FAERS Safety Report 26032009 (Version 1)
Quarter: 2025Q4

REPORT INFORMATION
  Report Type: Spontaneous
  Country: EU (occurrence: EU)
  Receive Date: 20251112
  Receipt Date: 20251112
  Transmission Date: 20260117
  Serious: Yes (Other)
  Sender: JOHNSON AND JOHNSON
  Company Number: EU-BAYER-2025A149086

PATIENT
  Age: 73 Year
  Sex: Female

DRUGS (1)
  1. XARELTO [Suspect]
     Active Substance: RIVAROXABAN
     Indication: Pulmonary embolism
     Dosage: 10 MG

REACTIONS (3)
  - Peripheral artery occlusion [Recovering/Resolving]
  - Peripheral arterial occlusive disease [Unknown]
  - Product ineffective [Unknown]
